FAERS Safety Report 10684927 (Version 2)
Quarter: 2014Q4

REPORT INFORMATION
  Report Type: Spontaneous
  Country: NL (occurrence: NL)
  Receive Date: 20141231
  Receipt Date: 20141231
  Transmission Date: 20150529
  Serious: Yes (Hospitalization)
  Sender: FDA-Public Use
  Company Number: NL-PFIZER INC-2014356780

PATIENT
  Age: 64 Year
  Sex: Male

DRUGS (13)
  1. DICLOFENAC [Concomitant]
     Active Substance: DICLOFENAC
  2. PARACETAMOL [Concomitant]
     Active Substance: ACETAMINOPHEN
  3. ZOPICLONE [Concomitant]
     Active Substance: ZOPICLONE
  4. MACROGOL [Concomitant]
     Active Substance: POLYETHYLENE GLYCOLS
  5. ACETYLSALICYLIC ACID [Concomitant]
     Active Substance: ASPIRIN
     Dosage: 80 MG, 1X/DAY
  6. LYRICA [Suspect]
     Active Substance: PREGABALIN
     Indication: NEURALGIA
     Dosage: 150 MG, DAILY ( 2 X75MG)
     Dates: start: 20141216, end: 20141219
  7. SERETIDE [Concomitant]
     Active Substance: FLUTICASONE FUROATE\SALMETEROL XINAFOATE
     Dosage: 2 DF, 2X/DAY
  8. LYRICA [Suspect]
     Active Substance: PREGABALIN
     Dosage: 225 MG (75 MG, 3X/DAY)
     Dates: start: 20141219
  9. SPIRIVA [Concomitant]
     Active Substance: TIOTROPIUM BROMIDE MONOHYDRATE
     Dosage: 1 DF, 1X/DAY
  10. OXYCODONE [Concomitant]
     Active Substance: OXYCODONE
     Dosage: UNK
  11. CITALOPRAM [Concomitant]
     Active Substance: CITALOPRAM HYDROBROMIDE
     Dosage: 40 MG, 1X/DAY
  12. PANTOZOL [Concomitant]
     Active Substance: PANTOPRAZOLE SODIUM
  13. TRAMADOL [Concomitant]
     Active Substance: TRAMADOL

REACTIONS (2)
  - Myoclonus [Recovering/Resolving]
  - Axonal neuropathy [Recovering/Resolving]

NARRATIVE: CASE EVENT DATE: 20141219
